FAERS Safety Report 13402089 (Version 2)
Quarter: 2017Q2

REPORT INFORMATION
  Report Type: Report from Study
  Country: US (occurrence: US)
  Receive Date: 20170404
  Receipt Date: 20170412
  Transmission Date: 20170830
  Serious: Yes (Other)
  Sender: FDA-Public Use
  Company Number: US-009507513-1703USA014441

PATIENT
  Age: 75 Year
  Sex: Female

DRUGS (5)
  1. ADVANCED BIONUTRITIONALS ULTIMATE BONE SUPPORT [Suspect]
     Active Substance: DIETARY SUPPLEMENT
     Indication: ROUTINE HEALTH MAINTENANCE
     Dosage: ONCE A DAY
  2. DIETARY SUPPLEMENT (UNSPECIFIED) [Concomitant]
     Active Substance: DIETARY SUPPLEMENT
     Dosage: UNK, APPROXIMATELY 20 UNSPECIFIED SUPPLEMENTS
  3. ESTRADIOL. [Concomitant]
     Active Substance: ESTRADIOL
     Dosage: UNK
     Route: 067
  4. METFORMIN [Concomitant]
     Active Substance: METFORMIN HYDROCHLORIDE
     Dosage: UNK
  5. PEMBROLIZUMAB. [Suspect]
     Active Substance: PEMBROLIZUMAB
     Indication: NON-SMALL CELL LUNG CANCER STAGE IV
     Dosage: UNK, EVERY 3 WEEKS
     Route: 042
     Dates: start: 20170310

REACTIONS (15)
  - Pyrexia [Unknown]
  - Cyst [Unknown]
  - Cough [Unknown]
  - Pain [Recovered/Resolved]
  - Diarrhoea [Recovered/Resolved]
  - Mass [Unknown]
  - Epistaxis [Recovered/Resolved]
  - Pruritus [Unknown]
  - Necrosis [Unknown]
  - Alopecia [Unknown]
  - Nausea [Unknown]
  - Sneezing [Unknown]
  - Facial pain [Recovering/Resolving]
  - Tongue discomfort [Unknown]
  - Vomiting [Unknown]

NARRATIVE: CASE EVENT DATE: 2017
